FAERS Safety Report 8763166 (Version 2)
Quarter: 2013Q1

REPORT INFORMATION
  Report Type: Spontaneous
  Country: US (occurrence: US)
  Receive Date: 20120831
  Receipt Date: 20130123
  Transmission Date: 20140127
  Serious: Yes (Hospitalization)
  Sender: FDA-Public Use
  Company Number: US-BAYER-2012-089200

PATIENT
  Age: 17 Year
  Sex: Female
  Weight: 80 kg

DRUGS (7)
  1. OCELLA [Suspect]
  2. PRISTIQ [Concomitant]
  3. DIAMOX [Concomitant]
  4. FIORICET [Concomitant]
  5. MIRALAX [Concomitant]
  6. MORPHINE [Concomitant]
  7. ORAL CONTRACEPTIVE NOS [Concomitant]

REACTIONS (1)
  - Cerebral thrombosis [Recovered/Resolved]
